FAERS Safety Report 7762061-1 (Version None)
Quarter: 2011Q3

REPORT INFORMATION
  Report Type: 
  Country: None (occurrence: None)
  Receive Date: 20110825
  Receipt Date: 20110712
  Transmission Date: 20111222
  Serious: No
  Sender: FDA-Public Use
  Company Number: 331698

PATIENT
  Age: 73 Year
  Sex: Female

DRUGS (4)
  1. STARLIX [Concomitant]
  2. LANTUS (INSULIN ANALOGUE) [Concomitant]
  3. ONGLYZA [Concomitant]
  4. VICTOZA [Suspect]
     Indication: TYPE 2 DIABETES MELLITUS
     Dosage: 1.8 MG, QD, SUBCUTANEOUS
     Route: 058
     Dates: start: 20110502

REACTIONS (1)
  - BLOOD GLUCOSE INCREASED [None]
